FAERS Safety Report 4985585-9 (Version None)
Quarter: 2006Q2

REPORT INFORMATION
  Report Type: 
  Country: None (occurrence: None)
  Receive Date: 20060428
  Receipt Date: 20051209
  Transmission Date: 20061013
  Serious: No
  Sender: FDA-Public Use
  Company Number: US-GLAXOSMITHKLINE-A0585238A

PATIENT
  Sex: Female

DRUGS (9)
  1. SEREVENT [Suspect]
     Indication: ASTHMA
     Dosage: 1PUFF TWICE PER DAY
     Route: 055
  2. METFORMIN [Concomitant]
  3. GLYBURIDE [Concomitant]
  4. KLOR-CON [Concomitant]
  5. LASIX [Concomitant]
  6. LISINOPRIL [Concomitant]
  7. ATROVENT [Concomitant]
  8. ALBUTEROL SULFATE AUTOHALER [Concomitant]
  9. ZOCOR [Concomitant]

REACTIONS (1)
  - DRUG INEFFECTIVE [None]
